FAERS Safety Report 16034413 (Version 1)
Quarter: 2019Q1

REPORT INFORMATION
  Report Type: Spontaneous
  Country: US (occurrence: US)
  Receive Date: 20190305
  Receipt Date: 20190305
  Transmission Date: 20190418
  Serious: No
  Sender: FDA-Public Use
  Company Number: US-PFIZER INC-2019082502

PATIENT
  Age: 73 Year
  Sex: Male
  Weight: 102 kg

DRUGS (3)
  1. TOVIAZ [Suspect]
     Active Substance: FESOTERODINE FUMARATE
     Indication: PROSTATE CANCER
     Dosage: 4 MG, 1X/DAY [MOSTLY AT NIGHT]
  2. TOVIAZ [Suspect]
     Active Substance: FESOTERODINE FUMARATE
     Indication: MICTURITION URGENCY
  3. DOXAZOSIN MESYLATE. [Concomitant]
     Active Substance: DOXAZOSIN MESYLATE
     Indication: PROSTATE CANCER
     Dosage: 4 MG, UNK

REACTIONS (5)
  - Hyperhidrosis [Unknown]
  - Product prescribing error [Unknown]
  - Prostate examination abnormal [Unknown]
  - Drug ineffective [Unknown]
  - Expired product administered [Unknown]
